FAERS Safety Report 22057908 (Version 1)
Quarter: 2023Q1

REPORT INFORMATION
  Report Type: Spontaneous
  Country: GB (occurrence: GB)
  Receive Date: 20230303
  Receipt Date: 20230303
  Transmission Date: 20230417
  Serious: Yes (Hospitalization, Other)
  Sender: FDA-Public Use
  Company Number: GB-drreddys-LIT/UKI/23/0161836

PATIENT
  Age: 4 Decade
  Sex: Female

DRUGS (10)
  1. OLANZAPINE [Suspect]
     Active Substance: OLANZAPINE
     Indication: Pica
  2. OLANZAPINE [Suspect]
     Active Substance: OLANZAPINE
     Indication: Psychotic disorder due to a general medical condition
  3. RISPERIDONE [Suspect]
     Active Substance: RISPERIDONE
     Indication: Pica
  4. RISPERIDONE [Suspect]
     Active Substance: RISPERIDONE
     Indication: Psychotic disorder due to a general medical condition
  5. ASENAPINE [Suspect]
     Active Substance: ASENAPINE
     Indication: Pica
  6. ASENAPINE [Suspect]
     Active Substance: ASENAPINE
     Indication: Psychotic disorder due to a general medical condition
  7. ARIPIPRAZOLE [Suspect]
     Active Substance: ARIPIPRAZOLE
     Indication: Pica
  8. ARIPIPRAZOLE [Suspect]
     Active Substance: ARIPIPRAZOLE
     Indication: Psychotic disorder due to a general medical condition
  9. HALOPERIDOL [Suspect]
     Active Substance: HALOPERIDOL
     Indication: Pica
  10. HALOPERIDOL [Suspect]
     Active Substance: HALOPERIDOL
     Indication: Psychotic disorder due to a general medical condition

REACTIONS (2)
  - Pica [Recovered/Resolved]
  - Drug ineffective for unapproved indication [Unknown]
